FAERS Safety Report 4709722-6 (Version None)
Quarter: 2005Q3

REPORT INFORMATION
  Report Type: 
  Country: None (occurrence: None)
  Receive Date: 20050707
  Receipt Date: 20050621
  Transmission Date: 20060218
  Serious: Yes (Hospitalization)
  Sender: FDA-Public Use
  Company Number: USA0506100976

PATIENT
  Age: 67 Year
  Sex: Male

DRUGS (3)
  1. CYMBALTA [Suspect]
     Indication: DEPRESSION
     Dosage: 30 MG DAY
  2. MANNITOL [Concomitant]
  3. LORAZEPAM [Concomitant]

REACTIONS (2)
  - CEREBRAL HAEMORRHAGE [None]
  - ENDOCARDITIS [None]
